FAERS Safety Report 20023656 (Version 6)
Quarter: 2023Q1

REPORT INFORMATION
  Report Type: Report from Study
  Country: KR (occurrence: KR)
  Receive Date: 20211102
  Receipt Date: 20230217
  Transmission Date: 20230418
  Serious: Yes (Hospitalization)
  Sender: FDA-Public Use
  Company Number: KR-GLAXOSMITHKLINE-KR2021GSK225156

PATIENT

DRUGS (3)
  1. BELIMUMAB [Suspect]
     Active Substance: BELIMUMAB
     Indication: Systemic lupus erythematosus
     Dosage: 800, U
     Route: 042
     Dates: start: 20211013, end: 20211208
  2. PROGRAF [Concomitant]
     Active Substance: TACROLIMUS
     Indication: Product used for unknown indication
     Dosage: 2 MG, QD
     Route: 048
     Dates: start: 20210706
  3. PREDNISOLONE [Concomitant]
     Active Substance: PREDNISOLONE
     Indication: Product used for unknown indication
     Dosage: 5 MG, BID
     Route: 048
     Dates: start: 20210706, end: 20211105

REACTIONS (2)
  - Nausea [Not Recovered/Not Resolved]
  - C-reactive protein increased [Recovered/Resolved]

NARRATIVE: CASE EVENT DATE: 20211017
